FAERS Safety Report 12964622 (Version 4)
Quarter: 2017Q3

REPORT INFORMATION
  Report Type: Report from Study
  Country: US (occurrence: US)
  Receive Date: 20161122
  Receipt Date: 20170809
  Transmission Date: 20171127
  Serious: Yes (Hospitalization)
  Sender: FDA-Public Use
  Company Number: US-ACTELION-A-US2016-135583

PATIENT
  Age: 51 Year
  Sex: Female
  Weight: 82.99 kg

DRUGS (6)
  1. ADCIRCA [Concomitant]
     Active Substance: TADALAFIL
  2. WARFARIN [Concomitant]
     Active Substance: WARFARIN
  3. TYVASO [Concomitant]
     Active Substance: TREPROSTINIL
  4. OXYGEN. [Concomitant]
     Active Substance: OXYGEN
  5. OPSUMIT [Suspect]
     Active Substance: MACITENTAN
     Dosage: 10 MG, QD
     Route: 048
  6. OPSUMIT [Suspect]
     Active Substance: MACITENTAN
     Indication: PULMONARY ARTERIAL HYPERTENSION
     Dosage: 10 MG, QD
     Route: 048
     Dates: start: 20150113

REACTIONS (15)
  - Atrial fibrillation [Unknown]
  - Malaise [Unknown]
  - Dyspnoea [Unknown]
  - Nausea [Unknown]
  - Palpitations [Unknown]
  - Weight decreased [Unknown]
  - Bronchitis [Unknown]
  - Chest pain [Unknown]
  - Dizziness [Unknown]
  - Diarrhoea [Unknown]
  - Fluid retention [Unknown]
  - Vomiting [Unknown]
  - Muscle spasms [Unknown]
  - Oxygen therapy [Unknown]
  - Ligament sprain [Unknown]

NARRATIVE: CASE EVENT DATE: 201610
